APPROVED DRUG PRODUCT: TEMAZEPAM
Active Ingredient: TEMAZEPAM
Strength: 7.5MG
Dosage Form/Route: CAPSULE;ORAL
Application: A078581 | Product #001
Applicant: SUN PHARMACEUTICAL INDUSTRIES INC
Approved: Sep 8, 2009 | RLD: No | RS: No | Type: DISCN